FAERS Safety Report 5261217-X (Version None)
Quarter: 2007Q1

REPORT INFORMATION
  Report Type: 
  Country: None (occurrence: None)
  Receive Date: 20070309
  Receipt Date: 20070228
  Transmission Date: 20070707
  Serious: Yes (Hospitalization)
  Sender: FDA-Public Use
  Company Number: FR-PFIZER INC-2007015622

PATIENT
  Age: 73 Year
  Sex: Male

DRUGS (3)
  1. ZOLOFT [Suspect]
  2. DANAZOL [Suspect]
     Route: 048
     Dates: start: 20061007, end: 20070109
  3. LEVOCARNITINE [Concomitant]

REACTIONS (1)
  - ANGINA UNSTABLE [None]
